FAERS Safety Report 7387795-2 (Version None)
Quarter: 2011Q1

REPORT INFORMATION
  Report Type: 
  Country: None (occurrence: None)
  Receive Date: 20110331
  Receipt Date: 20110323
  Transmission Date: 20110831
  Serious: Yes (Death)
  Sender: FDA-Public Use
  Company Number: US-GILEAD-2011-0036951

PATIENT
  Sex: Male

DRUGS (10)
  1. LIPITOR [Concomitant]
  2. LANOXIN [Concomitant]
  3. CISPLATIN [Concomitant]
  4. TAXOTERE [Concomitant]
  5. PROSCAR [Concomitant]
  6. COLCHICINE [Concomitant]
  7. ZITHROMAX [Concomitant]
  8. FLOMAX [Concomitant]
  9. PROTONIX [Concomitant]
  10. LETAIRIS [Suspect]
     Indication: PULMONARY HYPERTENSION
     Route: 048
     Dates: start: 20100609, end: 20110225

REACTIONS (1)
  - DEATH [None]
